FAERS Safety Report 6148313-X (Version None)
Quarter: 2009Q2

REPORT INFORMATION
  Report Type: 
  Country: None (occurrence: None)
  Receive Date: 20090408
  Receipt Date: 20090331
  Transmission Date: 20091009
  Serious: Yes (Other)
  Sender: FDA-Public Use
  Company Number: JP-MERCK-0904USA00602

PATIENT
  Age: 86 Year
  Sex: Female

DRUGS (6)
  1. FOSAMAX [Suspect]
     Indication: OSTEOPOROSIS
     Route: 048
     Dates: start: 20080729, end: 20090226
  2. PANALDINE [Suspect]
     Indication: CEREBRAL INFARCTION
     Route: 048
     Dates: end: 20090226
  3. CEROCRAL [Suspect]
     Indication: CEREBRAL INFARCTION
     Route: 048
     Dates: end: 20090226
  4. LIPITOR [Suspect]
     Indication: HYPERLIPIDAEMIA
     Route: 048
     Dates: end: 20090226
  5. PURSENNID [Suspect]
     Indication: CONSTIPATION
     Route: 048
     Dates: end: 20090226
  6. LENDORMIN [Suspect]
     Indication: INSOMNIA
     Route: 048
     Dates: end: 20090226

REACTIONS (1)
  - HEPATIC FUNCTION ABNORMAL [None]
